FAERS Safety Report 24339830 (Version 3)
Quarter: 2024Q4

REPORT INFORMATION
  Report Type: Spontaneous
  Country: US (occurrence: US)
  Receive Date: 20240919
  Receipt Date: 20241118
  Transmission Date: 20250115
  Serious: Yes (Other)
  Sender: PFIZER
  Company Number: US-PFIZER INC-202400258257

PATIENT
  Age: 73 Year
  Sex: Female
  Weight: 56.7 kg

DRUGS (4)
  1. TOVIAZ [Suspect]
     Active Substance: FESOTERODINE FUMARATE
     Indication: Bladder spasm
     Dosage: 8 MG, 1X/DAY
     Route: 048
     Dates: start: 2015
  2. TOVIAZ [Suspect]
     Active Substance: FESOTERODINE FUMARATE
     Dosage: 8 MG, SHE STARTED TAKING IT EVERY OTHER DAY AND THEN STARTED TAKING IT EVERY 2 DAYS
     Route: 048
     Dates: start: 20240229
  3. TOVIAZ [Suspect]
     Active Substance: FESOTERODINE FUMARATE
     Dosage: 8 MG, SHE STARTED TAKING IT EVERY OTHER DAY AND THEN STARTED TAKING IT EVERY 2 DAYS
  4. TOVIAZ [Suspect]
     Active Substance: FESOTERODINE FUMARATE
     Dosage: TAKE IT EVERY 3 DAYS
     Route: 048
     Dates: start: 20240229

REACTIONS (3)
  - Hyperkalaemia [Recovered/Resolved]
  - Expired product administered [Unknown]
  - Intentional product misuse [Unknown]

NARRATIVE: CASE EVENT DATE: 20240201
